FAERS Safety Report 20963699 (Version 1)
Quarter: 2022Q2

REPORT INFORMATION
  Report Type: Report from Study
  Country: US (occurrence: US)
  Receive Date: 20220615
  Receipt Date: 20220615
  Transmission Date: 20220720
  Serious: Yes (Hospitalization, Other)
  Sender: FDA-Public Use
  Company Number: US-TEVA-2019-US-1129157

PATIENT
  Age: 82 Year
  Sex: Male
  Weight: 81 kg

DRUGS (6)
  1. ACYCLOVIR [Suspect]
     Active Substance: ACYCLOVIR
     Indication: Infection prophylaxis
     Dosage: 800 MILLIGRAM DAILY;
     Route: 048
     Dates: start: 20190328
  2. MYCOPHENOLATE MOFETIL [Suspect]
     Active Substance: MYCOPHENOLATE MOFETIL
     Indication: Immunosuppression
     Dosage: 2 GRAM DAILY;
     Route: 048
     Dates: start: 20190328
  3. SULFAMETHOXAZOLE\TRIMETHOPRIM [Suspect]
     Active Substance: SULFAMETHOXAZOLE\TRIMETHOPRIM
     Indication: Infection prophylaxis
     Dosage: 80/400 MG
     Route: 048
     Dates: start: 20190328
  4. NYSTATIN [Suspect]
     Active Substance: NYSTATIN
     Indication: Infection prophylaxis
     Dosage: 16 ML DAILY;
     Route: 048
     Dates: start: 20190328, end: 20190425
  5. INVESTIGATIONAL PRODUCT [Suspect]
     Active Substance: INVESTIGATIONAL PRODUCT
     Indication: Age-related macular degeneration
     Dates: start: 20190404
  6. TACROLIMUS [Suspect]
     Active Substance: TACROLIMUS
     Indication: Immunosuppression
     Dosage: 4 MILLIGRAM DAILY;
     Route: 048
     Dates: start: 20190328, end: 20190507

REACTIONS (2)
  - Pneumonia [Recovering/Resolving]
  - Macular fibrosis [Recovered/Resolved]

NARRATIVE: CASE EVENT DATE: 20190509
